FAERS Safety Report 19269727 (Version 1)
Quarter: 2021Q2

REPORT INFORMATION
  Report Type: Spontaneous
  Country: US (occurrence: US)
  Receive Date: 20210518
  Receipt Date: 20210518
  Transmission Date: 20210717
  Serious: Yes (Other)
  Sender: FDA-Public Use
  Company Number: None

PATIENT
  Age: 53 Year
  Sex: Female
  Weight: 108 kg

DRUGS (11)
  1. METOPROLOL SUCCINATE ER [Concomitant]
     Active Substance: METOPROLOL SUCCINATE
  2. VITAMIN D2 [Concomitant]
     Active Substance: ERGOCALCIFEROL
  3. ONE A DAY FOR WOMEN OVER 50 [Concomitant]
  4. PANTOPRAZOLE SODIUM. [Concomitant]
     Active Substance: PANTOPRAZOLE SODIUM
  5. GLUCOSAMINE WITH MSM [Concomitant]
  6. HYDROCHLORATHIAZIDE [Concomitant]
     Active Substance: HYDROCHLOROTHIAZIDE
  7. RECLAST [Suspect]
     Active Substance: ZOLEDRONIC ACID
     Indication: OSTEOPOROSIS
     Dosage: ?          OTHER FREQUENCY:ONCE PER YEAR;?
     Route: 042
     Dates: start: 20200803, end: 20200803
  8. OLMESARTAN MEDOXOMIL. [Concomitant]
     Active Substance: OLMESARTAN MEDOXOMIL
  9. ROSUVASTATIN CALCIUM. [Concomitant]
     Active Substance: ROSUVASTATIN CALCIUM
  10. ALLERFLEX [Concomitant]
  11. POTASSIUM [Concomitant]
     Active Substance: POTASSIUM

REACTIONS (7)
  - Pain [None]
  - Pyrexia [None]
  - Chills [None]
  - Ocular hyperaemia [None]
  - Migraine [None]
  - Anaemia [None]
  - Thrombosis [None]

NARRATIVE: CASE EVENT DATE: 20200803
